FAERS Safety Report 4388874-4 (Version None)
Quarter: 2004Q2

REPORT INFORMATION
  Report Type: 
  Country: None (occurrence: None)
  Receive Date: 20040624
  Receipt Date: 20040525
  Transmission Date: 20050107
  Serious: No
  Sender: FDA-Public Use
  Company Number: 28576

PATIENT

DRUGS (2)
  1. BSS SOLUTION (BATCH # : UNK) [Suspect]
     Indication: SURGERY
     Dosage: IO
     Route: 031
  2. (CELOFTAL) HYDROXYPROPYLMETHYLCELLULOSE (HPMC) (BATCH #: UNK) [Suspect]
     Indication: SURGERY
     Dosage: IO
     Route: 031

REACTIONS (6)
  - ANTERIOR CHAMBER FIBRIN [None]
  - ENDOPHTHALMITIS [None]
  - EYE INFECTION INTRAOCULAR [None]
  - EYE PAIN [None]
  - POST PROCEDURAL COMPLICATION [None]
  - TREATMENT NONCOMPLIANCE [None]
